FAERS Safety Report 16844630 (Version 1)
Quarter: 2019Q3

REPORT INFORMATION
  Report Type: Spontaneous
  Country: US (occurrence: US)
  Receive Date: 20190924
  Receipt Date: 20190924
  Transmission Date: 20191005
  Serious: No
  Sender: FDA-Public Use
  Company Number: US-VIFOR (INTERNATIONAL) INC.-VIT-2019-08316

PATIENT
  Sex: Female

DRUGS (8)
  1. CARVEDILOL. [Concomitant]
     Active Substance: CARVEDILOL
  2. VELTASSA [Suspect]
     Active Substance: PATIROMER
     Indication: HYPERKALAEMIA
     Route: 048
     Dates: start: 20190404
  3. LATANOPROST. [Concomitant]
     Active Substance: LATANOPROST
  4. TORSEMIDE. [Concomitant]
     Active Substance: TORSEMIDE
  5. HYDRALAZINE [Concomitant]
     Active Substance: HYDRALAZINE HYDROCHLORIDE
  6. DILTIAZEM. [Concomitant]
     Active Substance: DILTIAZEM
  7. LOSARTAN. [Concomitant]
     Active Substance: LOSARTAN
  8. SOD BICAR [Concomitant]

REACTIONS (2)
  - Product dose omission [Unknown]
  - Muscle spasms [Unknown]

NARRATIVE: CASE EVENT DATE: 2019
